FAERS Safety Report 6457183-1 (Version None)
Quarter: 2009Q4

REPORT INFORMATION
  Report Type: 
  Country: None (occurrence: None)
  Receive Date: 20091125
  Receipt Date: 20090507
  Transmission Date: 20100525
  Serious: No
  Sender: FDA-Public Use
  Company Number: US-AMGEN-KDL345541

PATIENT
  Sex: Female

DRUGS (8)
  1. ENBREL [Suspect]
     Indication: PSORIATIC ARTHROPATHY
     Route: 058
     Dates: start: 20090212
  2. METHOTREXATE SODIUM [Concomitant]
     Route: 058
  3. FOLIC ACID [Concomitant]
  4. MELOXICAM [Concomitant]
  5. NEURONTIN [Concomitant]
  6. ZOLOFT [Concomitant]
  7. OMEPRAZOLE [Concomitant]
  8. PREMARIN [Concomitant]

REACTIONS (3)
  - ARTHRALGIA [None]
  - COUGH [None]
  - PYREXIA [None]
